FAERS Safety Report 21607727 (Version 1)
Quarter: 2022Q4

REPORT INFORMATION
  Report Type: Spontaneous
  Country: HK (occurrence: HK)
  Receive Date: 20221117
  Receipt Date: 20221117
  Transmission Date: 20230113
  Serious: Yes (Other)
  Sender: FDA-Public Use
  Company Number: HK-BAYER-2022A158041

PATIENT

DRUGS (1)
  1. EYLEA [Suspect]
     Active Substance: AFLIBERCEPT
     Indication: Product used for unknown indication
     Dosage: 3 INJECTIONS TOTALLY; SOLUTION FOR INJECTION; 40MG/ML
     Route: 031

REACTIONS (1)
  - Macular fibrosis [Unknown]
